FAERS Safety Report 5314479-4 (Version None)
Quarter: 2007Q2

REPORT INFORMATION
  Report Type: 
  Country: None (occurrence: None)
  Receive Date: 20070502
  Receipt Date: 20060919
  Transmission Date: 20071010
  Serious: No
  Sender: FDA-Public Use
  Company Number: US-GLAXOSMITHKLINE-A0620671A

PATIENT
  Age: 10 Year
  Sex: Female

DRUGS (4)
  1. AMOXIL [Suspect]
     Dosage: 250MG THREE TIMES PER DAY
     Route: 048
     Dates: start: 20060917
  2. BENTYL [Concomitant]
  3. ZANTAC [Concomitant]
  4. TYLENOL [Concomitant]

REACTIONS (3)
  - COELIAC DISEASE [None]
  - DIZZINESS [None]
  - NAUSEA [None]
